FAERS Safety Report 9186506 (Version 15)
Quarter: 2019Q4

REPORT INFORMATION
  Report Type: Spontaneous
  Country: US (occurrence: US)
  Receive Date: 20130325
  Receipt Date: 20191217
  Transmission Date: 20200122
  Serious: Yes (Hospitalization, Other)
  Sender: FDA-Public Use
  Company Number: US-PFIZER INC-2013093787

PATIENT
  Age: 59 Year
  Sex: Female
  Weight: 68.2 kg

DRUGS (15)
  1. LYRICA [Suspect]
     Active Substance: PREGABALIN
     Indication: NEUROPATHY PERIPHERAL
     Dosage: 150 MG, 1X/DAY
     Route: 048
     Dates: start: 2011, end: 2011
  2. LYRICA [Suspect]
     Active Substance: PREGABALIN
     Dosage: 150 MG, 2X/DAY
     Route: 048
     Dates: start: 2011
  3. MILK THISTLE [Concomitant]
     Active Substance: DIETARY SUPPLEMENT\HERBALS\MILK THISTLE
     Dosage: UNK
  4. RED YEAST RICE [Concomitant]
     Active Substance: DIETARY SUPPLEMENT
     Dosage: UNK
  5. LYRICA [Suspect]
     Active Substance: PREGABALIN
     Dosage: 150 MG, 2X/DAY
     Route: 048
  6. FLUOXETINE [Concomitant]
     Active Substance: FLUOXETINE HYDROCHLORIDE
     Indication: DEPRESSION
     Dosage: 20 MG, 1X/DAY
     Dates: start: 201311
  7. TRAMADOL. [Concomitant]
     Active Substance: TRAMADOL
     Indication: PAIN IN EXTREMITY
     Dosage: 50 MG, AS NEEDED (3/DAY)
     Dates: start: 201404
  8. HYDROCHLOROTHIAZIDE. [Concomitant]
     Active Substance: HYDROCHLOROTHIAZIDE
     Indication: DIURETIC THERAPY
     Dosage: 25 MG, DAILY
     Dates: start: 2009
  9. NIACIN. [Concomitant]
     Active Substance: NIACIN
     Dosage: UNK
  10. LYRICA [Suspect]
     Active Substance: PREGABALIN
     Dosage: 150 MG, 2X/DAY
     Route: 048
  11. METFORMIN [Concomitant]
     Active Substance: METFORMIN HYDROCHLORIDE
     Indication: GLUCOSE TOLERANCE IMPAIRED
     Dosage: 500 MG, 1X/DAY
     Dates: start: 2009
  12. LOVAZA [Concomitant]
     Active Substance: OMEGA-3-ACID ETHYL ESTERS
     Indication: BLOOD CHOLESTEROL INCREASED
     Dosage: 1 G, 4X/DAY
     Dates: start: 2010
  13. TRAMADOL. [Concomitant]
     Active Substance: TRAMADOL
     Dosage: 2 A DAY
  14. LISINOPRIL. [Concomitant]
     Active Substance: LISINOPRIL
     Indication: HYPERTENSION
     Dosage: 20 MG, 2X/DAY
     Dates: start: 2008
  15. LYRICA [Suspect]
     Active Substance: PREGABALIN
     Dosage: 150 MG, 2X/DAY
     Route: 048

REACTIONS (27)
  - Withdrawal syndrome [Recovered/Resolved]
  - Paraesthesia [Not Recovered/Not Resolved]
  - Hypoaesthesia [Not Recovered/Not Resolved]
  - Fluid intake reduced [Recovered/Resolved]
  - Drug ineffective [Not Recovered/Not Resolved]
  - Feeling abnormal [Unknown]
  - Discomfort [Unknown]
  - Intentional product use issue [Unknown]
  - Insomnia [Not Recovered/Not Resolved]
  - Malaise [Recovered/Resolved]
  - Nausea [Unknown]
  - Headache [Unknown]
  - Impaired work ability [Unknown]
  - Poor quality sleep [Unknown]
  - Condition aggravated [Not Recovered/Not Resolved]
  - Gait inability [Unknown]
  - Pain in extremity [Not Recovered/Not Resolved]
  - Neuropathy peripheral [Not Recovered/Not Resolved]
  - Nervousness [Unknown]
  - Tachyphrenia [Unknown]
  - Foot fracture [Unknown]
  - Product dose omission [Unknown]
  - Pain [Not Recovered/Not Resolved]
  - Pain [Not Recovered/Not Resolved]
  - Abdominal discomfort [Unknown]
  - Condition aggravated [Not Recovered/Not Resolved]
  - Eating disorder [Recovered/Resolved]

NARRATIVE: CASE EVENT DATE: 2008
